FAERS Safety Report 5029543-7 (Version None)
Quarter: 2006Q2

REPORT INFORMATION
  Report Type: 
  Country: None (occurrence: None)
  Receive Date: 20060620
  Receipt Date: 20060609
  Transmission Date: 20061013
  Serious: Yes (Other)
  Sender: FDA-Public Use
  Company Number: PHBS2006IN08569

PATIENT
  Age: 27 Year
  Sex: Female

DRUGS (5)
  1. RISPERIDONE [Concomitant]
     Indication: AGGRESSION
     Dosage: 6 MG/DAY
  2. CLONAZEPAM [Concomitant]
     Indication: AGGRESSION
     Dosage: 2 MG/DAY
  3. VALPROIC ACID [Concomitant]
  4. LITHIUM CARBONATE [Concomitant]
     Dosage: 900 MG/DAY
  5. CARBAMAZEPINE [Suspect]
     Indication: PSYCHOTIC DISORDER
     Dosage: 400 MG/DAY

REACTIONS (14)
  - ANGIONEUROTIC OEDEMA [None]
  - BLOOD SODIUM DECREASED [None]
  - DIZZINESS [None]
  - EOSINOPHIL COUNT DECREASED [None]
  - EYELID OEDEMA [None]
  - LYMPHOCYTE COUNT DECREASED [None]
  - MONOCYTE COUNT DECREASED [None]
  - PRURITUS [None]
  - PYREXIA [None]
  - RASH MACULO-PAPULAR [None]
  - SKIN DISCOLOURATION [None]
  - SYNCOPE [None]
  - VOMITING [None]
  - WHITE BLOOD CELL COUNT INCREASED [None]
